FAERS Safety Report 4607370-X (Version None)
Quarter: 2005Q1

REPORT INFORMATION
  Report Type: 
  Country: None (occurrence: None)
  Receive Date: 20050309
  Receipt Date: 20050224
  Transmission Date: 20050727
  Serious: Yes (Death)
  Sender: FDA-Public Use
  Company Number: HQWYE895414MAY04

PATIENT
  Age: 67 Year
  Sex: Male

DRUGS (7)
  1. ZURCAZOL (PANTOPRAZOLE, TABLET, DELAYED RELEASE) [Suspect]
     Indication: PROPHYLAXIS
     Dosage: 40 MG 1X PER 1 DAY, ORAL
     Route: 048
     Dates: start: 20040123, end: 20040123
  2. CLAVULANIC ACID (CLAVULANIC ACID,) [Suspect]
  3. TICARCILLIN (TICARCILLIN, ) [Suspect]
  4. VOLTAREN [Concomitant]
  5. TIMENTIN [Concomitant]
  6. BUPIVACAINE [Concomitant]
  7. LONARID (AMOBARBITAL/CAFFEINE/CODEINE PHOSPHATE/OCTIBENZONIUM BROMIDE/ [Concomitant]

REACTIONS (1)
  - HEPATORENAL FAILURE [None]
